FAERS Safety Report 14135213 (Version 2)
Quarter: 2017Q4

REPORT INFORMATION
  Report Type: Spontaneous
  Country: FR (occurrence: FR)
  Receive Date: 20171027
  Receipt Date: 20171120
  Transmission Date: 20180321
  Serious: Yes (Hospitalization)
  Sender: FDA-Public Use
  Company Number: FR-BRISTOL-MYERS SQUIBB COMPANY-BMS-2017-095680

PATIENT
  Age: 77 Year
  Sex: Female

DRUGS (9)
  1. CITALOPRAM [Suspect]
     Active Substance: CITALOPRAM HYDROBROMIDE
     Indication: MAJOR DEPRESSION
     Route: 065
  2. ABILIFY [Suspect]
     Active Substance: ARIPIPRAZOLE
     Indication: PSYCHOTIC DISORDER
     Dosage: 10 MG, QD (INEVENING)
     Route: 048
     Dates: end: 20170627
  3. CITALOPRAM [Suspect]
     Active Substance: CITALOPRAM HYDROBROMIDE
     Indication: MANIA
     Dosage: 2 MG, DAILY
     Route: 048
     Dates: end: 20170627
  4. DEPAMIDE [Suspect]
     Active Substance: VALPROMIDE
     Indication: PSYCHOTIC DISORDER
     Dosage: 300 MG, BID
     Route: 048
  5. LOXAPAC                            /00401801/ [Concomitant]
     Active Substance: LOXAPINE SUCCINATE
     Indication: PSYCHOTIC DISORDER
     Dosage: 50 MG, DAILY
     Route: 048
  6. TEMERIT DUO [Concomitant]
     Active Substance: HYDROCHLOROTHIAZIDE\NEBIVOLOL HYDROCHLORIDE
     Indication: HYPOTHYROIDISM
     Dosage: DAILY
     Route: 048
  7. EXFORGE [Suspect]
     Active Substance: AMLODIPINE BESYLATE\VALSARTAN
     Indication: HYPERTENSION
     Dosage: 1 TAB, QD (LUNCH)
     Route: 048
     Dates: end: 20170627
  8. SPIRONOLACTONE. [Suspect]
     Active Substance: SPIRONOLACTONE
     Indication: HYPERTENSION
     Dosage: 1 TAB, QD (IN MORNING)
     Route: 048
     Dates: end: 20170627
  9. LEVOTHYROX [Concomitant]
     Active Substance: LEVOTHYROXINE
     Indication: HYPERTENSION
     Dosage: 125 ?G, DAILY
     Route: 048

REACTIONS (6)
  - Product use in unapproved indication [Unknown]
  - Hyponatraemia [Recovered/Resolved]
  - Fall [Recovered/Resolved]
  - Psychomotor skills impaired [Unknown]
  - Confusional state [Unknown]
  - Oxygen saturation decreased [Unknown]

NARRATIVE: CASE EVENT DATE: 20170626
